FAERS Safety Report 6581705-3 (Version None)
Quarter: 2010Q1

REPORT INFORMATION
  Report Type: 
  Country: None (occurrence: None)
  Receive Date: 20100211
  Receipt Date: 20100211
  Transmission Date: 20100710
  Serious: Yes (Other)
  Sender: FDA-Public Use
  Company Number: None

PATIENT
  Sex: Female
  Weight: 87.0906 kg

DRUGS (1)
  1. DIAMOX [Suspect]
     Indication: BENIGN INTRACRANIAL HYPERTENSION
     Dosage: 500 2 TIMES/DAY ORAL 1-2 YEARS AGO
     Route: 048

REACTIONS (1)
  - BLISTER [None]
